FAERS Safety Report 8800028 (Version 2)
Quarter: 2015Q1

REPORT INFORMATION
  Report Type: Report from Study
  Country: US (occurrence: US)
  Receive Date: 20120921
  Receipt Date: 20150305
  Transmission Date: 20150721
  Serious: Yes (Death)
  Sender: FDA-Public Use
  Company Number: US-ROCHE-1096375

PATIENT
  Sex: Female
  Weight: 60 kg

DRUGS (20)
  1. PEGFILGRASTIM [Concomitant]
     Active Substance: PEGFILGRASTIM
     Route: 065
  2. MYCELEX [Concomitant]
     Active Substance: CLOTRIMAZOLE
  3. POTASSIUM CHLORIDE. [Concomitant]
     Active Substance: POTASSIUM CHLORIDE
  4. PREVACID [Concomitant]
     Active Substance: LANSOPRAZOLE
  5. FLAGYL [Concomitant]
     Active Substance: METRONIDAZOLE\METRONIDAZOLE HYDROCHLORIDE
  6. FILGRASTIM [Concomitant]
     Active Substance: FILGRASTIM
     Route: 065
  7. NAVELBINE [Concomitant]
     Active Substance: VINORELBINE TARTRATE
  8. CARBOPLATIN. [Concomitant]
     Active Substance: CARBOPLATIN
  9. REGLAN [Concomitant]
     Active Substance: METOCLOPRAMIDE HYDROCHLORIDE
  10. ATIVAN [Concomitant]
     Active Substance: LORAZEPAM
  11. AVASTIN [Suspect]
     Active Substance: BEVACIZUMAB
     Indication: BREAST CANCER FEMALE
     Route: 065
     Dates: start: 20051026
  12. HERCEPTIN [Suspect]
     Active Substance: TRASTUZUMAB
     Dosage: MAINTENANCE DOSE
     Route: 042
  13. GRANISETRON [Concomitant]
     Active Substance: GRANISETRON
     Route: 065
  14. ARANESP [Concomitant]
     Active Substance: DARBEPOETIN ALFA
  15. PEPCID [Concomitant]
     Active Substance: FAMOTIDINE
  16. DARVOCET [Concomitant]
     Active Substance: ACETAMINOPHEN\PROPOXYPHENE HYDROCHLORIDE
  17. HERCEPTIN [Suspect]
     Active Substance: TRASTUZUMAB
     Indication: BREAST CANCER FEMALE
     Dosage: LOADING DOSE, OVER 90 MINUTES
     Route: 042
     Dates: start: 20050510, end: 20050510
  18. XELODA [Suspect]
     Active Substance: CAPECITABINE
     Indication: BREAST CANCER FEMALE
     Route: 048
  19. TAXOTERE [Suspect]
     Active Substance: DOCETAXEL
     Indication: BREAST CANCER FEMALE
     Route: 065
     Dates: start: 20050510
  20. GEMZAR [Concomitant]
     Active Substance: GEMCITABINE HYDROCHLORIDE

REACTIONS (26)
  - Rash [Unknown]
  - Epistaxis [Unknown]
  - Pleural effusion [Unknown]
  - Pain in extremity [Unknown]
  - Dysphagia [Unknown]
  - Lacrimation increased [Unknown]
  - Dysphonia [Unknown]
  - Nausea [Unknown]
  - Palmar-plantar erythrodysaesthesia syndrome [Unknown]
  - Dizziness [Unknown]
  - Eye irritation [Unknown]
  - Neuropathy peripheral [Unknown]
  - Death [Fatal]
  - Off label use [Unknown]
  - Rectal haemorrhage [Unknown]
  - Fatigue [Unknown]
  - Dehydration [Unknown]
  - Fear [Unknown]
  - Headache [Unknown]
  - Pruritus [Unknown]
  - Asthenia [Unknown]
  - Diarrhoea [Unknown]
  - Onychomadesis [Unknown]
  - Neutropenia [Unknown]
  - Muscle spasms [Unknown]
  - Vomiting [Unknown]
